FAERS Safety Report 8440110 (Version 2)
Quarter: 2013Q1

REPORT INFORMATION
  Report Type: Spontaneous
  Country: DE (occurrence: None)
  Receive Date: 20120222
  Receipt Date: 20130211
  Transmission Date: 20140127
  Serious: No
  Sender: FDA-Public Use
  Company Number: 2012-00196

PATIENT
  Age: 64 Year
  Sex: Male
  Weight: 81.65 kg

DRUGS (2)
  1. ZICAM COLD REMEDY RAPIDMELTS [Suspect]
     Indication: MAJOR DEPRESSION
     Dosage: 1 RAPIDMELT EVERY 3 HOURS
     Dates: start: 20121130, end: 20121210
  2. TYLENOL MULTI-SYMPTOM EXTRA STRENGTH [Concomitant]
     Indication: MAJOR DEPRESSION
     Dosage: TOTAL DOSE UP TO 4.5 G

REACTIONS (13)
  - Grand mal convulsion [None]
  - Muscle rigidity [None]
  - Hyperreflexia [None]
  - Haemodialysis [None]
  - Incorrect dose administered [None]
  - No therapeutic response [None]
  - Loss of consciousness [None]
  - Blood sodium decreased [None]
  - Blood creatine phosphokinase increased [None]
  - Blood creatine phosphokinase MB increased [None]
  - Body temperature increased [None]
  - Suicide attempt [None]
  - Myoclonus [None]
